FAERS Safety Report 22084965 (Version 2)
Quarter: 2023Q1

REPORT INFORMATION
  Report Type: Spontaneous
  Country: US (occurrence: US)
  Receive Date: 20230310
  Receipt Date: 20230315
  Transmission Date: 20230418
  Serious: No
  Sender: FDA-Public Use
  Company Number: US-PFIZER INC-202300102499

PATIENT
  Sex: Female

DRUGS (1)
  1. VISTARIL [Suspect]
     Active Substance: HYDROXYZINE PAMOATE
     Indication: Anxiety
     Dosage: UNK

REACTIONS (3)
  - Drug ineffective [Unknown]
  - Sleep disorder [Unknown]
  - Somnolence [Unknown]
